FAERS Safety Report 8382932-5 (Version None)
Quarter: 2012Q2

REPORT INFORMATION
  Report Type: 
  Country: None (occurrence: None)
  Receive Date: 20120524
  Receipt Date: 20120518
  Transmission Date: 20120825
  Serious: Yes (Hospitalization, Disabling, Other)
  Sender: FDA-Public Use
  Company Number: US-PFIZER INC-2011158619

PATIENT
  Sex: Female
  Weight: 77.098 kg

DRUGS (14)
  1. HYDROCHLOROTHIAZIDE [Suspect]
     Indication: BLOOD PRESSURE ABNORMAL
  2. PLAVIX [Suspect]
     Indication: CARDIAC DISORDER
     Dosage: 75 MG, DAILY
  3. LOPRESSOR [Concomitant]
     Indication: BLOOD PRESSURE ABNORMAL
     Dosage: TWO TIMES DAILY
  4. GLUCOPHAGE [Suspect]
     Indication: TYPE 2 DIABETES MELLITUS
     Dosage: 5 MG, UNK
     Dates: start: 19951101
  5. METFORMIN HCL [Suspect]
     Indication: DIABETES MELLITUS
     Dosage: 2000 MG, DAILY
  6. LASIX [Suspect]
     Dosage: UNK
  7. METOPROLOL TARTRATE [Suspect]
     Indication: HYPERTENSION
     Dosage: 100 MG, 2X/DAY
  8. LOPERAMIDE HCL [Suspect]
     Indication: MICTURITION DISORDER
     Dosage: 2 MG, 2X/DAY
  9. HYDROCHLOROTHIAZIDE [Suspect]
     Indication: MICTURITION DISORDER
     Dosage: 12.5 MG, DAILY
  10. ACETYLSALICYLIC ACID SRT [Suspect]
     Indication: ANTICOAGULANT THERAPY
     Dosage: 325 MG, DAILY
  11. PREMPRO [Suspect]
     Indication: HOT FLUSH
     Dosage: 5 MG, DAILY
     Route: 048
     Dates: start: 20000901, end: 20000901
  12. ZOCOR [Suspect]
     Indication: BLOOD CHOLESTEROL INCREASED
     Dosage: 20 MG, DAILY
  13. COUMADIN [Suspect]
     Indication: ANTICOAGULANT THERAPY
     Dosage: UNK
  14. NATTOKINASE [Suspect]
     Indication: ANTICOAGULANT THERAPY
     Dosage: 200 MG, 2X/DAY

REACTIONS (17)
  - PHYSICAL DISABILITY [None]
  - SPEECH DISORDER [None]
  - DYSGRAPHIA [None]
  - FAECAL INCONTINENCE [None]
  - COORDINATION ABNORMAL [None]
  - CEREBROVASCULAR ACCIDENT [None]
  - URINARY INCONTINENCE [None]
  - MUSCULOSKELETAL STIFFNESS [None]
  - ABDOMINAL DISCOMFORT [None]
  - DRUG INEFFECTIVE [None]
  - ABASIA [None]
  - MEMORY IMPAIRMENT [None]
  - MOVEMENT DISORDER [None]
  - LOSS OF CONTROL OF LEGS [None]
  - CARDIAC DISORDER [None]
  - MUSCLE SPASMS [None]
  - DIABETES MELLITUS [None]
